FAERS Safety Report 7576307-6 (Version None)
Quarter: 2011Q2

REPORT INFORMATION
  Report Type: 
  Country: None (occurrence: None)
  Receive Date: 20110628
  Receipt Date: 20110615
  Transmission Date: 20111010
  Serious: Yes (Hospitalization)
  Sender: FDA-Public Use
  Company Number: NL-ELI_LILLY_AND_COMPANY-NL201009007786

PATIENT
  Sex: Male

DRUGS (20)
  1. FORTEO [Suspect]
     Dosage: UNK, UNKNOWN
  2. METFORMIN HCL [Concomitant]
     Dosage: 500 MG, BID
  3. ESOMEPRAZOL                        /01479301/ [Concomitant]
     Dosage: 40 MG, QD
  4. LACTULOSE [Concomitant]
     Dosage: 15 MG, QD
  5. FORTEO [Suspect]
     Dosage: UNK, QD
  6. PRAVASTATIN [Concomitant]
     Dosage: 20 MG, QD
  7. NOVORAPID [Concomitant]
  8. PREDNISONE [Concomitant]
     Dosage: 10 MG, QD
  9. CELLCEPT [Concomitant]
     Dosage: 1000 MG, BID
  10. MESALAMINE [Concomitant]
     Dosage: 1000 MG, BID
  11. VITAMIN D [Concomitant]
  12. RIFAXIMIN [Concomitant]
     Dosage: 200 MG, BID
  13. METOPROLOL TARTRATE [Concomitant]
     Dosage: 100 MG, QD
  14. LANTUS [Concomitant]
  15. FORTEO [Suspect]
     Dosage: UNK, DAILY (1/D)
  16. FORTEO [Suspect]
     Dosage: UNK, QOD
  17. CYCLOSPORINE [Concomitant]
     Dosage: 75 MG, UNK
  18. MULTIVITAMIN                       /01229101/ [Concomitant]
     Dosage: 1 DF, QD
  19. ACENOCOUMAROL [Concomitant]
  20. URSOCHOL [Concomitant]
     Dosage: 300 MG, QID

REACTIONS (9)
  - GASTROENTERITIS [None]
  - ADVERSE EVENT [None]
  - TREMOR [None]
  - PLATELET COUNT DECREASED [None]
  - NAUSEA [None]
  - FEELING COLD [None]
  - BLOOD GLUCOSE INCREASED [None]
  - HAEMOGLOBIN DECREASED [None]
  - INAPPROPRIATE SCHEDULE OF DRUG ADMINISTRATION [None]
